FAERS Safety Report 4303306-X (Version None)
Quarter: 2004Q1

REPORT INFORMATION
  Report Type: 
  Country: None (occurrence: None)
  Receive Date: 20040223
  Receipt Date: 20040217
  Transmission Date: 20041129
  Serious: Yes (Hospitalization)
  Sender: FDA-Public Use
  Company Number: 230003M04FRA

PATIENT
  Sex: Female

DRUGS (1)
  1. REBIF [Suspect]
     Indication: MULTIPLE SCLEROSIS

REACTIONS (5)
  - DEAFNESS UNILATERAL [None]
  - HEADACHE [None]
  - INNER EAR DISORDER [None]
  - MULTIPLE SCLEROSIS RELAPSE [None]
  - VERTIGO [None]
